FAERS Safety Report 6864384-7 (Version None)
Quarter: 2010Q3

REPORT INFORMATION
  Report Type: 
  Country: None (occurrence: None)
  Receive Date: 20100721
  Receipt Date: 20080703
  Transmission Date: 20110219
  Serious: No
  Sender: FDA-Public Use
  Company Number: US-PFIZER INC-2008025102

PATIENT

DRUGS (1)
  1. CHANTIX [Suspect]
     Indication: SMOKING CESSATION THERAPY
     Dates: start: 20080101

REACTIONS (4)
  - EYE PRURITUS [None]
  - JOINT SWELLING [None]
  - OEDEMA PERIPHERAL [None]
  - RASH MACULAR [None]
